FAERS Safety Report 10439993 (Version 2)
Quarter: 2016Q1

REPORT INFORMATION
  Report Type: Spontaneous
  Country: US (occurrence: US)
  Receive Date: 20140908
  Receipt Date: 20160201
  Transmission Date: 20160525
  Serious: No
  Sender: FDA-Public Use
  Company Number: US-BRISTOL-MYERS SQUIBB COMPANY-20069654

PATIENT
  Sex: Female

DRUGS (2)
  1. ZOLOFT [Concomitant]
     Active Substance: SERTRALINE HYDROCHLORIDE
     Indication: DEPRESSION
     Dosage: INCREASED TO 100MG.
     Route: 065
     Dates: start: 2013, end: 20131025
  2. ABILIFY [Suspect]
     Active Substance: ARIPIPRAZOLE
     Indication: BRIEF PSYCHOTIC DISORDER, WITH POSTPARTUM ONSET
     Dosage: 2.5 MG, QD
     Route: 065
     Dates: start: 2013, end: 20131025

REACTIONS (3)
  - Off label use [Unknown]
  - Breast feeding [Unknown]
  - Suppressed lactation [Unknown]
